FAERS Safety Report 6913344-6 (Version None)
Quarter: 2010Q3

REPORT INFORMATION
  Report Type: 
  Country: None (occurrence: None)
  Receive Date: 20100809
  Receipt Date: 20100727
  Transmission Date: 20110219
  Serious: Yes (Other)
  Sender: FDA-Public Use
  Company Number: PHHY2010US40515

PATIENT
  Sex: Female

DRUGS (3)
  1. GENTEAL MODERATE LUBRICANT EYE DROPS (NVO) [Suspect]
     Dosage: UNK
  2. GENTEAL LUBRICATING EYE GEL (NVO) [Suspect]
     Dosage: UNK
  3. MEDICATION FOR ASTHMA [Concomitant]

REACTIONS (4)
  - CATARACT [None]
  - EYE DISCHARGE [None]
  - GLAUCOMA [None]
  - VISION BLURRED [None]
